FAERS Safety Report 12354995 (Version 2)
Quarter: 2016Q2

REPORT INFORMATION
  Report Type: Report from Study
  Country: IN (occurrence: IN)
  Receive Date: 20160511
  Receipt Date: 20160525
  Transmission Date: 20160815
  Serious: Yes (Life-Threatening, Hospitalization)
  Sender: FDA-Public Use
  Company Number: IN-ROCHE-1753970

PATIENT
  Age: 45 Year
  Sex: Male
  Weight: 77.8 kg

DRUGS (21)
  1. MET-XL [Concomitant]
     Route: 048
     Dates: start: 20160303
  2. RITUXIMAB [Suspect]
     Active Substance: RITUXIMAB
     Indication: GRANULOMATOSIS WITH POLYANGIITIS
     Dosage: VISIT 1, AT 12:30 HOURS AND THERAPY COMPLETED AT 16:03 HRS?ON 02/APR/2016, HE RECEIVED LAST DOSE PRI
     Route: 042
     Dates: start: 20160310
  3. WYSOLONE [Concomitant]
     Active Substance: PREDNISOLONE
     Route: 048
     Dates: start: 20160511
  4. PAN-D [Concomitant]
     Indication: DYSPEPSIA
     Route: 048
     Dates: start: 20160303
  5. NICARDIA [Concomitant]
     Route: 048
     Dates: start: 20160328
  6. AUGMENTIN DUO [Concomitant]
     Active Substance: AMOXICILLIN\CLAVULANATE POTASSIUM
     Dosage: FOR 5 DAYS
     Route: 048
     Dates: start: 20160419, end: 20160423
  7. METHYLPREDNISOLONE. [Suspect]
     Active Substance: METHYLPREDNISOLONE
     Indication: GRANULOMATOSIS WITH POLYANGIITIS
     Dosage: DATE OF LAST DOSE PRIOR TO SAE: 10/MAR/2016
     Route: 042
     Dates: start: 20160302
  8. FEBURIC [Concomitant]
     Active Substance: FEBUXOSTAT
     Dosage: ON ALTERNATIVE DAYS
     Route: 048
     Dates: start: 20160419
  9. SHELCAL [Concomitant]
     Indication: HYPOCALCAEMIA
     Route: 048
     Dates: start: 20160328
  10. ELTROXIN [Concomitant]
     Active Substance: LEVOTHYROXINE
     Dosage: HALF AN HOUR BEFORE BREAKFAST
     Route: 048
     Dates: start: 20160303
  11. FEFOL Z [Concomitant]
     Route: 048
     Dates: start: 20160419
  12. RITUXIMAB [Suspect]
     Active Substance: RITUXIMAB
     Dosage: VISIT 4, AT 11:15 HRS AND COMPLETED AT 13: 47  HRS.
     Route: 042
     Dates: start: 20160402
  13. RESTYL [Concomitant]
     Route: 048
     Dates: start: 20160419
  14. WYSOLONE [Concomitant]
     Active Substance: PREDNISOLONE
     Indication: VASCULITIS
     Dosage: AFTER BREAKFAST
     Route: 048
     Dates: start: 20160430
  15. MINIPRESS XL [Concomitant]
     Active Substance: PRAZOSIN HYDROCHLORIDE
     Route: 048
     Dates: start: 20160419
  16. CIPROFLOXACIN. [Concomitant]
     Active Substance: CIPROFLOXACIN
     Route: 065
     Dates: start: 20160515
  17. MINIPRESS XL [Concomitant]
     Active Substance: PRAZOSIN HYDROCHLORIDE
     Route: 048
     Dates: start: 20160511
  18. FOLVITE [Concomitant]
     Active Substance: FOLIC ACID
     Route: 048
     Dates: start: 20160419
  19. RITUXIMAB [Suspect]
     Active Substance: RITUXIMAB
     Dosage: VISIT 2, AT 12:15 HRS AND THERAPY COMPLETED AT 14:47 HRS.
     Route: 042
     Dates: start: 20160317
  20. RITUXIMAB [Suspect]
     Active Substance: RITUXIMAB
     Dosage: VISIT 3, AT 14:00 HRS AND COMPLETED AT 16:30 HRS.
     Route: 042
     Dates: start: 20160325
  21. FEBURIC [Concomitant]
     Active Substance: FEBUXOSTAT
     Dosage: ON ALTERNATIVE DAYS
     Route: 048
     Dates: start: 20160511

REACTIONS (2)
  - Respiratory failure [Recovered/Resolved]
  - Pneumonia [Recovered/Resolved]

NARRATIVE: CASE EVENT DATE: 20160504
